FAERS Safety Report 5806490-1 (Version None)
Quarter: 2008Q3

REPORT INFORMATION
  Report Type: 
  Country: None (occurrence: None)
  Receive Date: 20080710
  Receipt Date: 20080702
  Transmission Date: 20090109
  Serious: Yes (Life-Threatening, Hospitalization)
  Sender: FDA-Public Use
  Company Number: GB-PFIZER INC-2008055411

PATIENT
  Age: 61 Year
  Sex: Female
  Weight: 90.3 kg

DRUGS (15)
  1. SULFASALAZINE [Suspect]
     Indication: RHEUMATOID ARTHRITIS
     Route: 048
  2. METHOTREXATE [Suspect]
     Indication: RHEUMATOID ARTHRITIS
     Dosage: DAILY DOSE:25MG
     Route: 058
  3. ETANERCEPT [Suspect]
     Dosage: DAILY DOSE:50MG
     Route: 058
     Dates: start: 20071213, end: 20080511
  4. ALENDRONATE SODIUM [Concomitant]
     Route: 048
  5. ARTHROTEC [Concomitant]
     Indication: RHEUMATOID ARTHRITIS
     Route: 048
  6. ACETYLSALICYLIC ACID SRT [Concomitant]
     Indication: BLOOD PRESSURE INCREASED
     Route: 048
  7. BENDROFLUAZIDE [Concomitant]
     Route: 048
  8. CALCIUM WITH VITAMIN D [Concomitant]
  9. DIAZEPAM [Concomitant]
     Indication: SLEEP DISORDER
     Dosage: DAILY DOSE:2.5MG
     Route: 048
  10. ENALAPRIL MALEATE [Concomitant]
     Indication: BLOOD PRESSURE INCREASED
     Dosage: DAILY DOSE:20MG
     Route: 048
  11. FOLIC ACID [Concomitant]
     Route: 048
  12. OMEPRAZOLE [Concomitant]
     Route: 048
  13. PREDNISOLONE [Concomitant]
     Indication: RHEUMATOID ARTHRITIS
     Route: 048
  14. QUININE [Concomitant]
     Indication: MUSCLE SPASMS
     Dosage: DAILY DOSE:300MG
     Route: 048
  15. QUININE [Concomitant]

REACTIONS (2)
  - PULMONARY FIBROSIS [None]
  - SEPSIS [None]
